FAERS Safety Report 6434318-8 (Version None)
Quarter: 2009Q4

REPORT INFORMATION
  Report Type: 
  Country: None (occurrence: None)
  Receive Date: 20091110
  Receipt Date: 20080929
  Transmission Date: 20100525
  Serious: No
  Sender: FDA-Public Use
  Company Number: US-ASTRAZENECA-2009UW15171

PATIENT
  Age: 38 Year
  Sex: Female

DRUGS (1)
  1. PRILOSEC OTC [Suspect]
     Dosage: UNK DOSE, 2 /DAY
     Route: 048
     Dates: start: 20060929, end: 20080929

REACTIONS (6)
  - ANXIETY [None]
  - INCORRECT DOSE ADMINISTERED [None]
  - INCORRECT DRUG ADMINISTRATION DURATION [None]
  - MEMORY IMPAIRMENT [None]
  - NAUSEA [None]
  - VERTIGO [None]
